FAERS Safety Report 16372953 (Version 2)
Quarter: 2019Q2

REPORT INFORMATION
  Report Type: Spontaneous
  Country: EE (occurrence: EE)
  Receive Date: 20190530
  Receipt Date: 20190626
  Transmission Date: 20190711
  Serious: Yes (Death, Hospitalization, Other)
  Sender: FDA-Public Use
  Company Number: EE-JNJFOC-20190541419

PATIENT
  Age: 77 Year
  Sex: Female

DRUGS (4)
  1. XARELTO [Suspect]
     Active Substance: RIVAROXABAN
     Indication: ATRIAL FIBRILLATION
     Route: 048
     Dates: start: 20190402
  2. METOPROLOL. [Concomitant]
     Active Substance: METOPROLOL
     Route: 065
  3. DIGOXIN. [Concomitant]
     Active Substance: DIGOXIN
     Route: 065
  4. PARACETAMOL [Concomitant]
     Active Substance: ACETAMINOPHEN
     Indication: PRODUCT USED FOR UNKNOWN INDICATION
     Route: 042
     Dates: start: 20190417

REACTIONS (11)
  - Subarachnoid haemorrhage [Fatal]
  - Hemiparesis [Unknown]
  - Intracranial haematoma [Unknown]
  - Miosis [Unknown]
  - Nausea [Unknown]
  - Hemiplegia [Unknown]
  - Loss of consciousness [Unknown]
  - Brain oedema [Fatal]
  - Aneurysm [Unknown]
  - Vascular encephalopathy [Unknown]
  - Vomiting [Unknown]

NARRATIVE: CASE EVENT DATE: 2019
